FAERS Safety Report 16477846 (Version 1)
Quarter: 2019Q2

REPORT INFORMATION
  Report Type: Spontaneous
  Country: JP (occurrence: JP)
  Receive Date: 20190626
  Receipt Date: 20190626
  Transmission Date: 20190711
  Serious: Yes (Other)
  Sender: FDA-Public Use
  Company Number: JP-ELI_LILLY_AND_COMPANY-JP201906008446

PATIENT
  Age: 75 Year
  Sex: Female

DRUGS (2)
  1. MYOCOR [Suspect]
     Active Substance: NITROGLYCERIN
     Indication: ANGINA PECTORIS
     Dosage: UNK UNK, UNKNOWN
     Route: 060
  2. TRULICITY [Suspect]
     Active Substance: DULAGLUTIDE
     Indication: DIABETES MELLITUS
     Dosage: 0.75 MG, WEEKLY (1/W)
     Route: 058
     Dates: start: 20190304

REACTIONS (6)
  - Loss of consciousness [Unknown]
  - Angina pectoris [Unknown]
  - Dyspnoea [Unknown]
  - Musculoskeletal discomfort [Unknown]
  - Hyperhidrosis [Unknown]
  - Nausea [Unknown]

NARRATIVE: CASE EVENT DATE: 20190325
